FAERS Safety Report 6925929-1 (Version None)
Quarter: 2010Q3

REPORT INFORMATION
  Report Type: 
  Country: None (occurrence: None)
  Receive Date: 20100810
  Receipt Date: 20100802
  Transmission Date: 20110219
  Serious: Yes (Death)
  Sender: FDA-Public Use
  Company Number: 2010JP004442

PATIENT
  Weight: 12 kg

DRUGS (1)
  1. PROGRAF [Suspect]
     Indication: BONE MARROW TRANSPLANT
     Dosage: 5 MG, UID/QD, IV DRIP
     Route: 041
     Dates: start: 20100101

REACTIONS (4)
  - INTERSTITIAL LUNG DISEASE [None]
  - MEDICATION ERROR [None]
  - OVERDOSE [None]
  - SKIN EXFOLIATION [None]
